FAERS Safety Report 17934248 (Version 1)
Quarter: 2020Q2

REPORT INFORMATION
  Report Type: Spontaneous
  Country: US (occurrence: US)
  Receive Date: 20200624
  Receipt Date: 20200624
  Transmission Date: 20200714
  Serious: Yes (Death, Hospitalization)
  Sender: FDA-Public Use
  Company Number: US-TEVA-2020-US-1790093

PATIENT
  Age: 81 Year
  Sex: Male

DRUGS (1)
  1. METHOTREXATE. [Suspect]
     Active Substance: METHOTREXATE
     Indication: PSORIASIS
     Dosage: RECEIVED THE INJECTION IN HIS ABDOMEN
     Route: 065
     Dates: start: 20191118

REACTIONS (7)
  - Diarrhoea [Unknown]
  - Candida infection [Unknown]
  - Dyspnoea [Unknown]
  - Renal failure [Fatal]
  - Cardiac arrest [Fatal]
  - Lung disorder [Unknown]
  - Traumatic lung injury [Fatal]

NARRATIVE: CASE EVENT DATE: 20191120
